FAERS Safety Report 8888085 (Version 1)
Quarter: 2012Q4

REPORT INFORMATION
  Report Type: 
  Country: AU (occurrence: AU)
  Receive Date: 20121106
  Receipt Date: 20121106
  Transmission Date: 20130627
  Serious: Yes (Other)
  Sender: FDA-Public Use
  Company Number: AU-ACTELION-A-CH2012-73723

PATIENT
  Age: 55 Year
  Sex: Male

DRUGS (1)
  1. TRACLEER [Suspect]
     Indication: PRODUCT USED FOR UNKNOWN INDICATION
     Dosage: UNK mg, UNK
     Route: 048

REACTIONS (5)
  - Multi-organ failure [Unknown]
  - Shock [Unknown]
  - Anaemia [Unknown]
  - Hepatitis [Unknown]
  - Liver function test abnormal [Unknown]
